FAERS Safety Report 8589529-2 (Version None)
Quarter: 2012Q3

REPORT INFORMATION
  Report Type: 
  Country: None (occurrence: None)
  Receive Date: 20120813
  Receipt Date: 20120806
  Transmission Date: 20120928
  Serious: Yes (Hospitalization, Other)
  Sender: FDA-Public Use
  Company Number: BR-ROCHE-1025341

PATIENT
  Sex: Female

DRUGS (11)
  1. PREDNISOLONE [Concomitant]
  2. BUDECORT [Concomitant]
  3. BAMIFIX [Concomitant]
  4. SPIRIVA [Concomitant]
  5. SINGULAIR [Concomitant]
  6. ALBUTEROL [Concomitant]
  7. MOTILIUM (BRAZIL) [Concomitant]
  8. ACETYLCYSTEINE [Concomitant]
  9. FLUTICASONE PROPIONATE/SALMETEROL [Concomitant]
  10. XOLAIR [Suspect]
     Indication: PRODUCT USED FOR UNKNOWN INDICATION
     Route: 058
  11. OMEPRAZOLE [Concomitant]

REACTIONS (6)
  - ASTHMA [None]
  - FATIGUE [None]
  - RESPIRATORY DISORDER [None]
  - OSTEOPOROSIS [None]
  - DYSPNOEA [None]
  - HYPERTENSION [None]
